FAERS Safety Report 19190480 (Version 1)
Quarter: 2021Q2

REPORT INFORMATION
  Report Type: Spontaneous
  Country: US (occurrence: US)
  Receive Date: 20210428
  Receipt Date: 20210428
  Transmission Date: 20210717
  Serious: No
  Sender: FDA-Public Use
  Company Number: US-PFIZER INC-2021418502

PATIENT
  Age: 49 Year
  Sex: Female

DRUGS (1)
  1. XELJANZ XR [Suspect]
     Active Substance: TOFACITINIB CITRATE
     Dosage: 11 MG, UNK
     Dates: start: 20210315, end: 20210409

REACTIONS (6)
  - Vomiting [Unknown]
  - Back pain [Unknown]
  - Diarrhoea [Unknown]
  - Chest pain [Unknown]
  - Hot flush [Unknown]
  - Weight decreased [Unknown]
